FAERS Safety Report 8607263 (Version 2)
Quarter: 2012Q4

REPORT INFORMATION
  Report Type: 
  Country: US (occurrence: US)
  Receive Date: 20120611
  Receipt Date: 20120928
  Transmission Date: 20130627
  Serious: No
  Sender: FDA-Public Use
  Company Number: US-ASTRAZENECA-2012SE35920

PATIENT
  Age: 56 Year
  Sex: Female
  Weight: 66.7 kg

DRUGS (6)
  1. NEXIUM [Suspect]
     Indication: GASTROOESOPHAGEAL REFLUX DISEASE
     Route: 048
  2. NEXIUM [Suspect]
     Indication: GASTROOESOPHAGEAL REFLUX DISEASE
     Route: 048
     Dates: start: 200709
  3. CELEBREX [Concomitant]
     Route: 048
     Dates: start: 200709
  4. ZOCOR [Concomitant]
     Route: 048
     Dates: start: 200603
  5. AMBIEN [Concomitant]
     Indication: INSOMNIA
     Route: 048
     Dates: start: 200709
  6. CYCLOBENZAPRINE HCL [Concomitant]
     Dosage: TAKE ONE TABLET BY MOUTH 1 TO 2 HOURS BEFORE BEDTIME
     Route: 048
     Dates: start: 200603

REACTIONS (3)
  - Osteoporosis [Unknown]
  - Multiple fractures [Unknown]
  - Bone pain [Unknown]
